FAERS Safety Report 5217555-X (Version None)
Quarter: 2007Q1

REPORT INFORMATION
  Report Type: 
  Country: None (occurrence: None)
  Receive Date: 20070124
  Receipt Date: 20060324
  Transmission Date: 20070707
  Serious: No
  Sender: FDA-Public Use
  Company Number: US-GLAXOSMITHKLINE-A0598978A

PATIENT
  Sex: Female

DRUGS (1)
  1. PAROXETINE CR [Suspect]
     Dosage: 10MG PER DAY
     Route: 048
     Dates: start: 20060323

REACTIONS (1)
  - ABDOMINAL PAIN UPPER [None]
